FAERS Safety Report 9188735 (Version 2)
Quarter: 2013Q2

REPORT INFORMATION
  Report Type: Spontaneous
  Country: US (occurrence: US)
  Receive Date: 20130325
  Receipt Date: 20130513
  Transmission Date: 20140414
  Serious: Yes (Hospitalization)
  Sender: FDA-Public Use
  Company Number: US-B.I. PHARMACEUTICALS,INC./RIDGEFIELD-2013-BI-07106BP

PATIENT
  Age: 85 Year
  Sex: Female
  Weight: 64 kg

DRUGS (12)
  1. PRADAXA [Suspect]
     Indication: ATRIAL FIBRILLATION
     Dosage: 300 MG
     Route: 048
     Dates: start: 201106
  2. OXYBUTRIN [Concomitant]
     Indication: HYPERTONIC BLADDER
     Dosage: 10 MG
     Route: 048
  3. CENTRUM SILVER [Concomitant]
     Route: 048
  4. FLOVENT [Concomitant]
     Dosage: 250 MG
     Route: 055
  5. FLUTICASONE [Concomitant]
     Indication: SEASONAL ALLERGY
     Dosage: NASAL SPRAY
     Route: 045
  6. STOOL SOFTENER [Concomitant]
     Route: 048
  7. CALTRATE [Concomitant]
     Route: 048
  8. IRON [Concomitant]
     Dosage: 45 MG
     Route: 048
  9. TOPROL ER [Concomitant]
     Indication: HYPERTENSION
     Dosage: 25 MG
     Route: 048
  10. LEVOTHYROXINE [Concomitant]
     Indication: HYPOTHYROIDISM
     Dosage: 0.05 MG
     Route: 048
  11. NEXIUM [Concomitant]
     Indication: GASTROOESOPHAGEAL REFLUX DISEASE
     Dosage: 40 MG
     Route: 048
  12. CEFTIN [Concomitant]
     Dosage: 1000 MG
     Dates: start: 20130312, end: 20130318

REACTIONS (2)
  - Supraventricular tachycardia [Recovered/Resolved]
  - Sinusitis [Not Recovered/Not Resolved]
